FAERS Safety Report 9532318 (Version 1)
Quarter: 2013Q3

REPORT INFORMATION
  Report Type: Spontaneous
  Country: JP (occurrence: JP)
  Receive Date: 20130918
  Receipt Date: 20130918
  Transmission Date: 20140515
  Serious: Yes (Hospitalization)
  Sender: FDA-Public Use
  Company Number: PHHY2013JP103136

PATIENT
  Age: 65 Year
  Sex: Male
  Weight: 64 kg

DRUGS (3)
  1. ZOMETA [Suspect]
     Indication: METASTASES TO BONE
     Dosage: 4 MG, UNK
     Route: 041
     Dates: start: 20120417, end: 20130819
  2. ONETAXOTERE [Concomitant]
     Dosage: UNK UKN, UNK
     Route: 041
  3. ZOLADEX LA [Concomitant]
     Dosage: UNK UKN, UNK
     Route: 041

REACTIONS (3)
  - Osteonecrosis of jaw [Recovering/Resolving]
  - Infection [Unknown]
  - Toothache [Unknown]
